FAERS Safety Report 6767464-X (Version None)
Quarter: 2010Q2

REPORT INFORMATION
  Report Type: 
  Country: None (occurrence: None)
  Receive Date: 20100614
  Receipt Date: 20100601
  Transmission Date: 20101027
  Serious: No
  Sender: FDA-Public Use
  Company Number: PHHY2010DE35492

PATIENT
  Age: 43 Year
  Sex: Male

DRUGS (1)
  1. TASIGNA [Suspect]
     Dosage: 600 MG, DAILY
     Route: 048

REACTIONS (1)
  - LABELLED DRUG-FOOD INTERACTION MEDICATION ERROR [None]
